FAERS Safety Report 8021490-1 (Version None)
Quarter: 2011Q4

REPORT INFORMATION
  Report Type: 
  Country: None (occurrence: None)
  Receive Date: 20111230
  Receipt Date: 20111230
  Transmission Date: 20120403
  Serious: Yes (Other)
  Sender: FDA-Public Use
  Company Number: None

PATIENT
  Age: 68 Year
  Sex: Male
  Weight: 71.6 kg

DRUGS (2)
  1. IODIXANOL [Suspect]
     Indication: SMALL CELL LUNG CANCER STAGE UNSPECIFIED
     Dosage: 100 ML ONCE IV
     Route: 042
     Dates: start: 20111222, end: 20111222
  2. CISPLATIN [Suspect]
     Indication: SMALL CELL LUNG CANCER STAGE UNSPECIFIED
     Dosage: 140 MG ONCE IV
     Route: 042
     Dates: start: 20111223, end: 20111223

REACTIONS (2)
  - HYPOALBUMINAEMIA [None]
  - RENAL FAILURE ACUTE [None]
